FAERS Safety Report 16024274 (Version 2)
Quarter: 2019Q2

REPORT INFORMATION
  Report Type: Report from Study
  Country: ZA (occurrence: ZA)
  Receive Date: 20190301
  Receipt Date: 20190411
  Transmission Date: 20190711
  Serious: Yes (Hospitalization)
  Sender: FDA-Public Use
  Company Number: ZA-SA-2019SA051912

PATIENT
  Age: 46 Year
  Sex: Male

DRUGS (7)
  1. TAREG [Concomitant]
     Active Substance: VALSARTAN
     Dosage: 160 U, QD
     Dates: start: 20190328
  2. ADCO-SIMVASTATIN [Concomitant]
     Active Substance: SIMVASTATIN
     Dosage: 20 MG, QD
     Dates: start: 20190328
  3. OPTISULIN (INSULIN GLARGINE) [Suspect]
     Active Substance: INSULIN GLARGINE
     Dosage: 44 U, QD
     Dates: start: 20190328
  4. INSULIN GLULISINE [Suspect]
     Active Substance: INSULIN GLULISINE
     Dosage: 14 U, TID
     Dates: start: 20190221
  5. LANTUS [Concomitant]
     Active Substance: INSULIN GLARGINE
     Dosage: 42 U, HS
     Dates: start: 20190221
  6. INSULIN GLULISINE [Suspect]
     Active Substance: INSULIN GLULISINE
     Dosage: 14 U, QD
  7. PURICOS [Concomitant]
     Active Substance: ALLOPURINOL
     Dosage: 100 MG, QD
     Dates: start: 20190328

REACTIONS (5)
  - Blood cholesterol abnormal [Not Recovered/Not Resolved]
  - Product dose omission [Unknown]
  - Hypertension [Not Recovered/Not Resolved]
  - Diabetes mellitus inadequate control [Not Recovered/Not Resolved]
  - Glycosylated haemoglobin increased [Unknown]

NARRATIVE: CASE EVENT DATE: 20190208
